FAERS Safety Report 5751786-5 (Version None)
Quarter: 2008Q2

REPORT INFORMATION
  Report Type: 
  Country: None (occurrence: None)
  Receive Date: 20080529
  Receipt Date: 20080520
  Transmission Date: 20081010
  Serious: Yes (Hospitalization)
  Sender: FDA-Public Use
  Company Number: CA-JNJFOC-20080204694

PATIENT
  Sex: Male
  Weight: 160 kg

DRUGS (8)
  1. REMICADE [Suspect]
     Route: 042
  2. REMICADE [Suspect]
     Route: 042
  3. REMICADE [Suspect]
     Route: 042
  4. REMICADE [Suspect]
     Route: 042
  5. REMICADE [Suspect]
     Indication: COLITIS ULCERATIVE
     Route: 042
  6. SOLU-CORTEL [Concomitant]
     Indication: PREMEDICATION
     Route: 042
  7. TYLENOL [Concomitant]
     Indication: PREMEDICATION
     Route: 048
  8. BENADRYL [Concomitant]
     Indication: PREMEDICATION

REACTIONS (3)
  - DIARRHOEA [None]
  - PYREXIA [None]
  - VOMITING [None]
